FAERS Safety Report 8346314-4 (Version None)
Quarter: 2012Q2

REPORT INFORMATION
  Report Type: 
  Country: None (occurrence: None)
  Receive Date: 20120509
  Receipt Date: 20120503
  Transmission Date: 20120825
  Serious: Yes (Other)
  Sender: FDA-Public Use
  Company Number: US-AMGEN-USASP2012004628

PATIENT
  Age: 70 Year
  Sex: Male
  Weight: 117.91 kg

DRUGS (4)
  1. NPLATE [Suspect]
     Indication: THROMBOCYTOPENIA
     Dosage: 200 MUG/KG, QWK
     Route: 058
     Dates: start: 20111003, end: 20120312
  2. FLOMAX [Concomitant]
  3. PRADAXA [Suspect]
     Indication: ANTICOAGULANT THERAPY
     Dosage: 150 MG, QD
     Route: 048
     Dates: start: 20110922
  4. LISINOPRIL [Concomitant]

REACTIONS (2)
  - THERAPEUTIC RESPONSE DELAYED [None]
  - C-REACTIVE PROTEIN INCREASED [None]
